FAERS Safety Report 5123124-2 (Version None)
Quarter: 2006Q4

REPORT INFORMATION
  Report Type: 
  Country: None (occurrence: None)
  Receive Date: 20061009
  Receipt Date: 20061003
  Transmission Date: 20070319
  Serious: Yes (Other)
  Sender: FDA-Public Use
  Company Number: FR-AVENTIS-200613427FR

PATIENT
  Age: 84 Year
  Sex: Female

DRUGS (3)
  1. LOVENOX [Suspect]
     Indication: THROMBOSIS PROPHYLAXIS
     Route: 058
     Dates: start: 20060915
  2. VASTAREL [Concomitant]
     Route: 048
  3. TANAKAN                            /01003103/ [Concomitant]

REACTIONS (1)
  - THROMBOCYTHAEMIA [None]
